FAERS Safety Report 4549233-4 (Version None)
Quarter: 2005Q1

REPORT INFORMATION
  Report Type: 
  Country: None (occurrence: None)
  Receive Date: 20041230
  Receipt Date: 20040519
  Transmission Date: 20050727
  Serious: Yes (Hospitalization)
  Sender: FDA-Public Use
  Company Number: 04-05-0751

PATIENT
  Age: 47 Year
  Sex: Female

DRUGS (1)
  1. CLOZAPINE [Suspect]
     Dosage: 400MG QD ORAL
     Route: 048
     Dates: start: 20010401

REACTIONS (1)
  - TREATMENT NONCOMPLIANCE [None]
